FAERS Safety Report 5391610-6 (Version None)
Quarter: 2007Q3

REPORT INFORMATION
  Report Type: 
  Country: None (occurrence: None)
  Receive Date: 20070717
  Receipt Date: 20070702
  Transmission Date: 20080115
  Serious: Yes (Other)
  Sender: FDA-Public Use
  Company Number: 100#08#2007-02447

PATIENT
  Age: 35 Year
  Sex: Female

DRUGS (2)
  1. CITALOPRAM HYDROBROMIDE [Suspect]
     Indication: DEPRESSION
     Dosage: 40 MG/DAY BUT LAST 2 WEEKS OF THERAPY THAT THE DOSE WAS TAPPERED
  2. CLOMIPRAMINE (CLOMIPRAMINE) (CLOMIPRAMINE) [Suspect]
     Indication: DEPRESSION
     Dosage: DOSE WAS

REACTIONS (12)
  - AGITATION [None]
  - COORDINATION ABNORMAL [None]
  - DEPRESSED MOOD [None]
  - DRUG WITHDRAWAL SYNDROME [None]
  - FATIGUE [None]
  - HYPERHIDROSIS [None]
  - INSOMNIA [None]
  - MOVEMENT DISORDER [None]
  - MUSCLE SPASMS [None]
  - MUSCLE TWITCHING [None]
  - MUSCULOSKELETAL STIFFNESS [None]
  - PAIN IN EXTREMITY [None]
